FAERS Safety Report 6687184-X (Version None)
Quarter: 2010Q2

REPORT INFORMATION
  Report Type: 
  Country: None (occurrence: None)
  Receive Date: 20100415
  Receipt Date: 20100401
  Transmission Date: 20101027
  Serious: Yes (Hospitalization, Other)
  Sender: FDA-Public Use
  Company Number: 231191J08USA

PATIENT
  Age: 62 Year
  Sex: Female
  Weight: 89 kg

DRUGS (33)
  1. REBIF [Suspect]
     Indication: MULTIPLE SCLEROSIS
     Dosage: 44 MCG, 3 IN 1 WK, SUBCUTANEOUS, 44 MCG, 3 IN 1 WK, SUBCUTANEOUS
     Route: 058
     Dates: start: 20061122, end: 20080301
  2. REBIF [Suspect]
     Indication: MULTIPLE SCLEROSIS
     Dosage: 44 MCG, 3 IN 1 WK, SUBCUTANEOUS, 44 MCG, 3 IN 1 WK, SUBCUTANEOUS
     Route: 058
     Dates: start: 20080301, end: 20080401
  3. REBIF [Suspect]
     Indication: MULTIPLE SCLEROSIS
     Dosage: 44 MCG, 3 IN 1 WK, SUBCUTANEOUS, 44 MCG, 3 IN 1 WK, SUBCUTANEOUS
     Route: 058
     Dates: start: 20080501, end: 20091216
  4. PREMPRO [Suspect]
     Indication: HORMONE REPLACEMENT THERAPY
     Dates: start: 19970101, end: 20070701
  5. CELEBREX [Suspect]
     Indication: MULTIPLE SCLEROSIS
     Dates: end: 20070701
  6. VITAMIN D [Concomitant]
     Indication: PAIN
  7. SYNTHROID [Concomitant]
  8. PRAVASTATIN [Concomitant]
  9. IBUPROFEN [Concomitant]
  10. COZAAR [Concomitant]
  11. DILTIAZEM [Concomitant]
  12. WELLBUTRIN [Concomitant]
  13. SEROQUEL [Concomitant]
  14. ZETIA [Concomitant]
  15. TRICOR [Concomitant]
  16. NEXIUM [Concomitant]
  17. PLAVIX [Concomitant]
  18. BENICAR [Concomitant]
  19. WELCHOL [Concomitant]
  20. CYMBALTA [Concomitant]
  21. ASPIRIN [Concomitant]
  22. NIASPAN [Concomitant]
  23. BACLOFEN [Concomitant]
  24. FISH OIL (FISH OIL) [Concomitant]
  25. B COMPLEX (B-KOMPLEX) [Concomitant]
  26. FLAXSEED OIL (LINUM USITATISSIMUM SEED OIL) [Concomitant]
  27. IRON (IRON) [Concomitant]
  28. CALCIUM (CALCIUM) [Concomitant]
  29. COENZYME Q10 [Concomitant]
  30. 5-HYDROXYTRYPTOPHAN (OXITRIPTAN) [Concomitant]
  31. PRESERVISION (PRESERVISION LUTEIN EYE VITA. + MIN. SUP. SOFTG.) [Concomitant]
  32. GLUCOSAMINE AND CHONDROITIN (GLUCOSAMINE W/CHONDROITIN SULFATE) [Concomitant]
  33. METHOTREXATE [Concomitant]

REACTIONS (13)
  - ANAEMIA [None]
  - CORONARY ARTERY OCCLUSION [None]
  - DIZZINESS [None]
  - ECZEMA [None]
  - FEELING COLD [None]
  - HEART RATE INCREASED [None]
  - HYPERHIDROSIS [None]
  - IN-STENT ARTERIAL RESTENOSIS [None]
  - LYMPHOCYTE COUNT INCREASED [None]
  - MYOCARDIAL INFARCTION [None]
  - NAUSEA [None]
  - SINUSITIS [None]
  - WHITE BLOOD CELL COUNT DECREASED [None]
